FAERS Safety Report 4273670-9 (Version None)
Quarter: 2004Q1

REPORT INFORMATION
  Report Type: 
  Country: None (occurrence: None)
  Receive Date: 20040114
  Receipt Date: 20040102
  Transmission Date: 20041129
  Serious: Yes (Other)
  Sender: FDA-Public Use
  Company Number: 8004802

PATIENT
  Age: 38 Year
  Sex: Female
  Weight: 61 kg

DRUGS (5)
  1. KEPPRA [Suspect]
     Indication: CONVULSION
     Dosage: 3 G/D PC
     Dates: start: 20011217, end: 20020429
  2. KEPPRA [Suspect]
     Dosage: 1500 MG/D PC
     Dates: start: 20020430, end: 20031124
  3. KEPPRA [Suspect]
     Indication: CONVULSION
     Dosage: 1 G/D  PO
     Route: 048
     Dates: start: 20031125
  4. TOPAMAX [Concomitant]
  5. METOPROLOL [Concomitant]

REACTIONS (3)
  - LUPUS-LIKE SYNDROME [None]
  - THROMBOCYTOPENIA [None]
  - WEIGHT INCREASED [None]
